FAERS Safety Report 5663634-2 (Version None)
Quarter: 2008Q1

REPORT INFORMATION
  Report Type: 
  Country: None (occurrence: None)
  Receive Date: 20080307
  Receipt Date: 20080222
  Transmission Date: 20080703
  Serious: Yes (Hospitalization)
  Sender: FDA-Public Use
  Company Number: DE-1165378

PATIENT
  Sex: Female

DRUGS (1)
  1. AZOPT [Suspect]
     Route: 047

REACTIONS (3)
  - DIZZINESS [None]
  - EYE INFECTION BACTERIAL [None]
  - INJURY CORNEAL [None]
